FAERS Safety Report 16197208 (Version 21)
Quarter: 2022Q3

REPORT INFORMATION
  Report Type: Spontaneous
  Country: US (occurrence: US)
  Receive Date: 20190415
  Receipt Date: 20220801
  Transmission Date: 20221027
  Serious: Yes (Hospitalization, Other)
  Sender: FDA-Public Use
  Company Number: US-PFIZER INC-2019157851

PATIENT
  Age: 60 Year
  Sex: Female
  Weight: 54 kg

DRUGS (10)
  1. LYRICA [Suspect]
     Active Substance: PREGABALIN
     Indication: Fibromyalgia
     Dosage: 200 MG, DAILY
     Route: 048
     Dates: start: 2006
  2. LYRICA [Suspect]
     Active Substance: PREGABALIN
     Indication: Osteoporosis
     Dosage: 200 MG
     Route: 048
     Dates: start: 20190102, end: 2019
  3. LYRICA [Suspect]
     Active Substance: PREGABALIN
     Indication: Pain
     Dosage: 200 MG, DAILY
     Route: 048
     Dates: start: 2019, end: 2019
  4. LYRICA [Suspect]
     Active Substance: PREGABALIN
     Indication: Post-traumatic neuralgia
     Dosage: 200 MG, 1X/DAY
  5. LYRICA [Suspect]
     Active Substance: PREGABALIN
     Indication: Back pain
  6. AMBIEN [Concomitant]
     Active Substance: ZOLPIDEM TARTRATE
     Indication: Insomnia
     Dosage: UNK, 1X/DAY
  7. BUTALBITAL [Concomitant]
     Active Substance: BUTALBITAL
     Indication: Headache
     Dosage: 40 MG, 2X/DAY
     Route: 048
  8. BUTALBITAL [Concomitant]
     Active Substance: BUTALBITAL
     Indication: Migraine
  9. CYCLOBENZAPRINE [Concomitant]
     Active Substance: CYCLOBENZAPRINE
     Dosage: 5 MG, UNK
     Dates: start: 20190409, end: 20190411
  10. TYLENOL [Concomitant]
     Active Substance: ACETAMINOPHEN
     Dosage: UNK

REACTIONS (23)
  - Road traffic accident [Unknown]
  - Fibromyalgia [Unknown]
  - Condition aggravated [Unknown]
  - Pain [Unknown]
  - Product dose omission issue [Unknown]
  - Wound [Unknown]
  - Wrist fracture [Unknown]
  - Hand fracture [Unknown]
  - Myocardial infarction [Unknown]
  - Drug ineffective [Unknown]
  - Fall [Not Recovered/Not Resolved]
  - Movement disorder [Unknown]
  - Nasopharyngitis [Recovering/Resolving]
  - Joint injury [Not Recovered/Not Resolved]
  - Visual impairment [Unknown]
  - Arthralgia [Unknown]
  - Pyrexia [Unknown]
  - Feeling abnormal [Unknown]
  - Chills [Unknown]
  - Malaise [Unknown]
  - Disturbance in attention [Unknown]
  - Expired product administered [Unknown]
  - Intentional product use issue [Unknown]

NARRATIVE: CASE EVENT DATE: 20190101
